FAERS Safety Report 9849092 (Version 2)
Quarter: 2014Q1

REPORT INFORMATION
  Report Type: Spontaneous
  Country: GB (occurrence: GB)
  Receive Date: 20140128
  Receipt Date: 20140128
  Transmission Date: 20141002
  Serious: Yes (Hospitalization, Other)
  Sender: FDA-Public Use
  Company Number: PHFR2013GB006419

PATIENT
  Age: 56 Year
  Sex: Female

DRUGS (3)
  1. CLOZARIL [Suspect]
     Indication: SCHIZOPHRENIA
     Dosage: UNK
     Route: 048
     Dates: start: 20130613, end: 20131105
  2. SODIUM VALPROATE [Concomitant]
     Indication: CONVULSION
     Dosage: 800 MG, UNK
     Dates: start: 20130408
  3. HYOSCINE HYDROBROMIDE [Concomitant]
     Indication: SALIVARY HYPERSECRETION
     Dosage: 900 MG, UNK
     Route: 048
     Dates: start: 201306

REACTIONS (5)
  - Convulsion [Recovered/Resolved]
  - Electrocardiogram T wave inversion [Unknown]
  - Atrial fibrillation [Unknown]
  - Electrocardiogram QT prolonged [Unknown]
  - No therapeutic response [Unknown]
